FAERS Safety Report 7749722-5 (Version None)
Quarter: 2011Q3

REPORT INFORMATION
  Report Type: 
  Country: None (occurrence: None)
  Receive Date: 20110914
  Receipt Date: 20110902
  Transmission Date: 20111222
  Serious: Yes (Hospitalization)
  Sender: FDA-Public Use
  Company Number: CA-UCBSA-028380

PATIENT
  Sex: Female
  Weight: 61.23 kg

DRUGS (4)
  1. PREDNISONE [Concomitant]
     Indication: RHEUMATOID ARTHRITIS
     Dosage: VARIABLE (5-20) MG
     Route: 048
     Dates: start: 20110215
  2. PRENATAL VITAMINS [Concomitant]
     Indication: PREGNANCY
     Route: 048
     Dates: start: 20101201
  3. CIMZIA [Suspect]
     Indication: RHEUMATOID ARTHRITIS
     Route: 058
     Dates: start: 20110211, end: 20110301
  4. ASAPHEN [Concomitant]
     Route: 048

REACTIONS (6)
  - ARTHRALGIA [None]
  - CAESAREAN SECTION [None]
  - JOINT EFFUSION [None]
  - PALPITATIONS [None]
  - GAIT DISTURBANCE [None]
  - MATERNAL EXPOSURE DURING PREGNANCY [None]
